FAERS Safety Report 12266197 (Version 1)
Quarter: 2016Q2

REPORT INFORMATION
  Report Type: Spontaneous
  Country: US (occurrence: None)
  Receive Date: 20160413
  Receipt Date: 20160413
  Transmission Date: 20160815
  Serious: Yes (Hospitalization, Other)
  Sender: FDA-Public Use
  Company Number: None

PATIENT
  Age: 45 Year
  Sex: Female
  Weight: 72.58 kg

DRUGS (10)
  1. MINOCYCLINE [Concomitant]
     Active Substance: MINOCYCLINE\MINOCYCLINE HYDROCHLORIDE
  2. DULOXETINE DELAYED-RELEASE CAPSU, 60 MG [Suspect]
     Active Substance: DULOXETINE HYDROCHLORIDE
     Indication: MAJOR DEPRESSION
     Dosage: 30 CAPSULE(S) IN THE MORNING TAKEN BY MOUTH
     Route: 048
  3. ELYSIUM [Concomitant]
  4. COLACE [Concomitant]
     Active Substance: DOCUSATE SODIUM
  5. BUPROPION HYDROCHLORIDE XL [Concomitant]
     Active Substance: BUPROPION HYDROCHLORIDE
  6. AMPHETAMINE [Concomitant]
     Active Substance: AMPHETAMINE
  7. ZOLPIDEM [Concomitant]
     Active Substance: ZOLPIDEM\ZOLPIDEM TARTRATE
  8. DAILY VITAMIN [Concomitant]
     Active Substance: VITAMINS
  9. VITAMIN D [Concomitant]
     Active Substance: CHOLECALCIFEROL
  10. VITAMIN B [Concomitant]
     Active Substance: VITAMIN B

REACTIONS (9)
  - Crying [None]
  - Anger [None]
  - Nightmare [None]
  - Dizziness [None]
  - Headache [None]
  - Blood pressure decreased [None]
  - Vomiting [None]
  - Nausea [None]
  - Irritability [None]

NARRATIVE: CASE EVENT DATE: 20160412
